FAERS Safety Report 10006678 (Version 2)
Quarter: 2014Q1

REPORT INFORMATION
  Report Type: Spontaneous
  Country: DK (occurrence: DK)
  Receive Date: 20140313
  Receipt Date: 20140313
  Transmission Date: 20141002
  Serious: Yes (Life-Threatening, Hospitalization, Other)
  Sender: FDA-Public Use
  Company Number: DK-PFIZER INC-2014070359

PATIENT
  Age: 66 Year
  Sex: Male

DRUGS (3)
  1. METHOTREXATE SODIUM [Suspect]
     Indication: PSORIATIC ARTHROPATHY
     Dosage: 15 MG, WEEKLY
  2. METHYLPREDNISOLONE [Suspect]
     Indication: INFLAMMATORY BOWEL DISEASE
     Dosage: 40 MG, 2X/DAY
     Route: 042
  3. PREDNISOLONE [Suspect]
     Indication: INFLAMMATORY BOWEL DISEASE
     Dosage: 60 MG, 1X/DAY

REACTIONS (2)
  - Amoebic colitis [Recovered/Resolved]
  - Necrotising colitis [Recovered/Resolved]
